FAERS Safety Report 20359070 (Version 1)
Quarter: 2022Q1

REPORT INFORMATION
  Report Type: Spontaneous
  Country: JP (occurrence: JP)
  Receive Date: 20220120
  Receipt Date: 20220120
  Transmission Date: 20220423
  Serious: Yes (Other)
  Sender: FDA-Public Use
  Company Number: JP-TAKEDA-2022TUS003124

PATIENT
  Age: 5 Decade
  Sex: Male

DRUGS (2)
  1. LIALDA [Suspect]
     Active Substance: MESALAMINE
     Indication: Colitis ulcerative
     Dosage: 4800 MILLIGRAM, QD
     Route: 048
  2. ADRENAL [Concomitant]
     Active Substance: EPINEPHRINE
     Route: 054

REACTIONS (4)
  - Haemorrhage [Recovered/Resolved]
  - C-reactive protein increased [Recovering/Resolving]
  - White blood cell count increased [Recovering/Resolving]
  - Frequent bowel movements [Recovering/Resolving]

NARRATIVE: CASE EVENT DATE: 20180101
